FAERS Safety Report 6484607-6 (Version None)
Quarter: 2009Q4

REPORT INFORMATION
  Report Type: 
  Country: None (occurrence: None)
  Receive Date: 20091204
  Receipt Date: 20091123
  Transmission Date: 20100525
  Serious: Yes (Hospitalization, Other)
  Sender: FDA-Public Use
  Company Number: 442674

PATIENT
  Age: 36 Year
  Sex: Male

DRUGS (2)
  1. IRINOTECAN HCL [Suspect]
  2. CAPECITABINE [Suspect]

REACTIONS (3)
  - CHILLS [None]
  - HYPOTHERMIA [None]
  - NEUTROPENIA [None]
